FAERS Safety Report 7424568-6 (Version None)
Quarter: 2011Q2

REPORT INFORMATION
  Report Type: 
  Country: None (occurrence: None)
  Receive Date: 20110419
  Receipt Date: 20110411
  Transmission Date: 20111010
  Serious: Yes (Hospitalization)
  Sender: FDA-Public Use
  Company Number: US-US-EMD SERONO, INC.-7052233

PATIENT
  Sex: Female
  Weight: 116 kg

DRUGS (14)
  1. FISH OIL [Concomitant]
  2. BENADRYL [Concomitant]
     Indication: PREMEDICATION
  3. FOLIC ACID [Concomitant]
  4. MAGNESIUM [Concomitant]
  5. EPIPEN [Concomitant]
     Indication: DYSPNOEA
  6. NAPROXEN (ALEVE) [Concomitant]
     Indication: PREMEDICATION
  7. REBIF [Suspect]
     Indication: MULTIPLE SCLEROSIS
     Route: 058
     Dates: start: 20090306
  8. MULTIVIT [Concomitant]
  9. METOPROLOL SUCCINATE [Concomitant]
  10. AMLODIPINE [Concomitant]
  11. VITAMIN D [Concomitant]
  12. SELENIUM [Concomitant]
  13. ASCORBIC ACID [Concomitant]
  14. OSTEO BI FLEX [Concomitant]

REACTIONS (6)
  - DRY MOUTH [None]
  - INJECTION SITE INDURATION [None]
  - ASTHMA [None]
  - BLOOD PRESSURE INCREASED [None]
  - INJECTION SITE ERYTHEMA [None]
  - HYPERSENSITIVITY [None]
